FAERS Safety Report 19794874 (Version 2)
Quarter: 2021Q3

REPORT INFORMATION
  Report Type: Report from Study
  Country: MA (occurrence: MA)
  Receive Date: 20210907
  Receipt Date: 20210913
  Transmission Date: 20211014
  Serious: Yes (Other)
  Sender: FDA-Public Use
  Company Number: NVSC2021MA196990

PATIENT
  Sex: Female

DRUGS (1)
  1. GILENYA [Suspect]
     Active Substance: FINGOLIMOD HYDROCHLORIDE
     Indication: MULTIPLE SCLEROSIS
     Dosage: 0.5 MG
     Route: 048
     Dates: start: 20210506

REACTIONS (8)
  - Balance disorder [Unknown]
  - Decreased appetite [Unknown]
  - Gait disturbance [Unknown]
  - Fall [Unknown]
  - Illness [Unknown]
  - Movement disorder [Unknown]
  - Insomnia [Unknown]
  - Hand fracture [Unknown]
